FAERS Safety Report 8828171 (Version 2)
Quarter: 2012Q4

REPORT INFORMATION
  Report Type: 
  Country: ES (occurrence: ES)
  Receive Date: 20121005
  Receipt Date: 20121107
  Transmission Date: 20130627
  Serious: Yes (Hospitalization)
  Sender: FDA-Public Use
  Company Number: ES-PFIZER INC-2012244542

PATIENT
  Age: 64 Year
  Sex: Female

DRUGS (6)
  1. TAZOCEL [Suspect]
     Indication: COPD EXACERBATION
     Dosage: 1 DF, 4x/day
     Route: 042
     Dates: start: 20120107
  2. SALBUTAMOL [Interacting]
     Indication: COPD EXACERBATION
     Dosage: 0.5 ml, 2x/day
     Route: 055
     Dates: start: 20120104, end: 20120111
  3. DEXAMETHASONE [Interacting]
     Indication: BRAIN CANCER METASTATIC
     Dosage: 4 mg, 4x/day
     Route: 042
     Dates: start: 20120107, end: 20120111
  4. THEOPHYLLINE [Interacting]
     Indication: COPD
     Dosage: 200 mg, 2x/day
     Dates: start: 20120103, end: 20120106
  5. SEREVENT DISKUS [Interacting]
     Indication: COPD
     Dosage: UNK
     Route: 055
     Dates: start: 2007, end: 20120111
  6. ENALAPRIL [Concomitant]
     Indication: HYPERTENSION
     Dosage: 5 mg, 1x/day
     Route: 048
     Dates: start: 20120103, end: 20120106

REACTIONS (2)
  - Hypokalaemia [Recovered/Resolved]
  - Drug interaction [Recovered/Resolved]
